FAERS Safety Report 9144336 (Version 3)
Quarter: 2014Q2

REPORT INFORMATION
  Report Type: Report from Study
  Country: DE (occurrence: DE)
  Receive Date: 20130306
  Receipt Date: 20140627
  Transmission Date: 20141212
  Serious: Yes (Other)
  Sender: FDA-Public Use
  Company Number: DE-ROCHE-1197566

PATIENT
  Age: 89 Year
  Sex: Female
  Weight: 59.07 kg

DRUGS (4)
  1. RANIBIZUMAB [Suspect]
     Indication: AGE-RELATED MACULAR DEGENERATION
     Route: 050
     Dates: start: 20120110
  2. RANIBIZUMAB [Suspect]
     Route: 050
     Dates: start: 20120927
  3. RANIBIZUMAB [Suspect]
     Route: 050
     Dates: start: 20121022
  4. RANIBIZUMAB [Suspect]
     Route: 050
     Dates: start: 20121213, end: 20121213

REACTIONS (6)
  - Retinal cyst [Unknown]
  - Choroidal neovascularisation [Unknown]
  - Retinal disorder [Unknown]
  - Inappropriate schedule of drug administration [Unknown]
  - Visual acuity reduced [Unknown]
  - Intraocular pressure increased [Not Recovered/Not Resolved]
